FAERS Safety Report 8783336 (Version 1)
Quarter: 2012Q4

REPORT INFORMATION
  Report Type: 
  Country: US (occurrence: US)
  Receive Date: 20120913
  Receipt Date: 20120913
  Transmission Date: 20130627
  Serious: Yes (Other)
  Sender: FDA-Public Use
  Company Number: US-BAYER-2012-083945

PATIENT
  Age: 24 Year
  Sex: Male
  Weight: 84 kg

DRUGS (1)
  1. BACTINE PAIN RELIEVING CLEANSING ANESTHETIC SPRAY [Suspect]
     Dosage: Three times daily
     Route: 048
     Dates: start: 20120729, end: 20120809

REACTIONS (9)
  - Hot flush [Recovered/Resolved]
  - Cold sweat [Recovered/Resolved]
  - Dizziness [Recovered/Resolved]
  - Headache [Recovered/Resolved]
  - Stomatitis [Recovered/Resolved]
  - Candidiasis [Recovered/Resolved]
  - Oral pain [Recovered/Resolved]
  - Gingival pain [Recovered/Resolved]
  - Oral mucosal erythema [Recovered/Resolved]
